FAERS Safety Report 5214087-X (Version None)
Quarter: 2007Q1

REPORT INFORMATION
  Report Type: 
  Country: None (occurrence: None)
  Receive Date: 20070122
  Receipt Date: 20070109
  Transmission Date: 20070707
  Serious: Yes (Death)
  Sender: FDA-Public Use
  Company Number: KR-PFIZER INC-2007003205

PATIENT
  Sex: Female

DRUGS (6)
  1. ZYVOX [Suspect]
     Indication: PNEUMONIA
     Route: 042
     Dates: start: 20060712, end: 20060718
  2. ZYVOX [Suspect]
     Indication: ENTEROCOCCAL INFECTION
  3. SULPERAZONE [Concomitant]
     Route: 042
     Dates: start: 20060713, end: 20060718
  4. TAZOCIN [Concomitant]
     Route: 042
     Dates: start: 20060712, end: 20060718
  5. HYDROCORTISONE [Concomitant]
     Route: 042
     Dates: start: 20060712, end: 20060718
  6. AMINOPHYLLINE [Concomitant]
     Route: 042
     Dates: start: 20060706, end: 20060718

REACTIONS (1)
  - DEATH [None]
